FAERS Safety Report 25430281 (Version 1)
Quarter: 2025Q2

REPORT INFORMATION
  Report Type: Spontaneous
  Country: JP (occurrence: JP)
  Receive Date: 20250612
  Receipt Date: 20250612
  Transmission Date: 20250717
  Serious: Yes (Death, Other)
  Sender: JAZZ
  Company Number: JP-JAZZ PHARMACEUTICALS-2025-JP-014762

PATIENT
  Age: 81 Year
  Sex: Male

DRUGS (2)
  1. VYXEOS [Suspect]
     Active Substance: CYTARABINE\DAUNORUBICIN
     Indication: Acute myeloid leukaemia
     Route: 042
  2. VYXEOS [Suspect]
     Active Substance: CYTARABINE\DAUNORUBICIN
     Indication: Myelodysplastic syndrome

REACTIONS (5)
  - Acute myeloid leukaemia [Fatal]
  - Cytopenia [Unknown]
  - Pseudomembranous colitis [Unknown]
  - Stomatitis [Unknown]
  - Bacteraemia [Unknown]
